FAERS Safety Report 5402748-9 (Version None)
Quarter: 2007Q3

REPORT INFORMATION
  Report Type: 
  Country: None (occurrence: None)
  Receive Date: 20070730
  Receipt Date: 20070730
  Transmission Date: 20080115
  Serious: Yes (Hospitalization)
  Sender: FDA-Public Use
  Company Number: None

PATIENT
  Age: 29 Year
  Sex: Male

DRUGS (1)
  1. QUETIAPINE FUMARATE [Suspect]
     Indication: POST-TRAUMATIC STRESS DISORDER
     Dosage: 25MG HS PO
     Route: 048
     Dates: start: 20070101, end: 20070619

REACTIONS (3)
  - DYSPHEMIA [None]
  - DYSPHONIA [None]
  - MOVEMENT DISORDER [None]
